FAERS Safety Report 18078315 (Version 1)
Quarter: 2020Q3

REPORT INFORMATION
  Report Type: Spontaneous
  Country: US (occurrence: US)
  Receive Date: 20200727
  Receipt Date: 20200727
  Transmission Date: 20201103
  Serious: Yes (Other)
  Sender: FDA-Public Use
  Company Number: NVSC2020US209216

PATIENT
  Age: 3 Month
  Sex: Female

DRUGS (1)
  1. TRIAMCINOLONE [Suspect]
     Active Substance: TRIAMCINOLONE
     Indication: DERMATITIS DIAPER
     Dosage: 0.1 %, BID (4?5 TIMES DAILY)
     Route: 065

REACTIONS (2)
  - Cushing^s syndrome [Unknown]
  - Incorrect dose administered [Unknown]
